FAERS Safety Report 7961505-X (Version None)
Quarter: 2011Q4

REPORT INFORMATION
  Report Type: 
  Country: None (occurrence: None)
  Receive Date: 20111207
  Receipt Date: 20111201
  Transmission Date: 20120403
  Serious: Yes (Hospitalization)
  Sender: FDA-Public Use
  Company Number: US-CELGENEUS-163-C5013-11120241

PATIENT
  Sex: Male
  Weight: 82.628 kg

DRUGS (2)
  1. LENALIDOMIDE [Suspect]
     Indication: MANTLE CELL LYMPHOMA
     Dosage: 25 MILLIGRAM
     Route: 065
     Dates: start: 20110823
  2. LENALIDOMIDE [Suspect]
     Route: 065
     Dates: start: 20111116, end: 20111201

REACTIONS (1)
  - FIBULA FRACTURE [None]
